FAERS Safety Report 8436955-8 (Version None)
Quarter: 2012Q2

REPORT INFORMATION
  Report Type: 
  Country: None (occurrence: None)
  Receive Date: 20120614
  Receipt Date: 20120209
  Transmission Date: 20120825
  Serious: No
  Sender: FDA-Public Use
  Company Number: US-AMGEN-USASP2011049017

PATIENT
  Age: 81 Year
  Sex: Male

DRUGS (19)
  1. HYDROXYZINE [Concomitant]
  2. TYLENOL (CAPLET) [Concomitant]
  3. BENADRYL [Concomitant]
  4. DAPSONE [Concomitant]
  5. FEXOFENADINE HCL [Concomitant]
  6. TEKTURNA [Concomitant]
  7. MAGNESIUM [Concomitant]
  8. ARANESP [Suspect]
     Indication: RENAL FAILURE CHRONIC
     Dosage: 300 MUG, Q3WK
     Dates: start: 20110906
  9. ASPIRIN [Concomitant]
  10. FUROSEMIDE [Concomitant]
  11. CLOBETASOL                         /00337102/ [Concomitant]
  12. ALPHAGAN [Concomitant]
  13. LABETALOL HYDROCHLORIDE [Concomitant]
  14. PREVACID [Concomitant]
  15. ROPINIROLE [Concomitant]
  16. IRON [Concomitant]
  17. ECONAZOLE NITRATE [Concomitant]
  18. VYTORIN [Concomitant]
  19. XYZAL [Concomitant]

REACTIONS (3)
  - DIARRHOEA [None]
  - DEHYDRATION [None]
  - ASTHENIA [None]
